FAERS Safety Report 7539921-X (Version None)
Quarter: 2011Q2

REPORT INFORMATION
  Report Type: 
  Country: None (occurrence: None)
  Receive Date: 20110610
  Receipt Date: 20110531
  Transmission Date: 20111010
  Serious: Yes (Hospitalization)
  Sender: FDA-Public Use
  Company Number: DE-PFIZER INC-2011108794

PATIENT
  Age: 73 Year
  Sex: Male

DRUGS (17)
  1. METOCLOPRAMIDE [Concomitant]
     Dosage: UNK
     Dates: start: 20100914
  2. PANTOPRAZOLE [Concomitant]
     Dosage: UNK
     Dates: start: 20100916
  3. MACROGOL [Concomitant]
     Dosage: UNK
     Dates: start: 20100916
  4. ALIZAPRIDE [Concomitant]
     Dosage: UNK
     Dates: start: 20100916
  5. FUCIDINE CAP [Concomitant]
     Dosage: UNK
     Dates: start: 20101119
  6. TRETINOIN [Concomitant]
     Dosage: UNK
     Dates: start: 20101119
  7. TORISEL [Suspect]
     Dosage: 25 MG, WEEKLY
     Route: 042
     Dates: start: 20110223
  8. DEXAMETHASONE [Suspect]
     Dosage: UNK
     Dates: start: 20100916
  9. ACETYLSALICYLIC ACID [Concomitant]
     Dosage: UNK
     Dates: start: 20100914
  10. HYDROMORPHONE [Concomitant]
     Dosage: UNK
     Dates: start: 20100916
  11. LAXOBERAL [Concomitant]
     Dosage: UNK
     Dates: start: 20100916
  12. UREA [Concomitant]
     Dosage: UNK
     Dates: start: 20101119
  13. METOPROLOL [Concomitant]
  14. SEVREDOL [Concomitant]
     Dosage: UNK
     Dates: start: 20100301
  15. SODIUM HYDROGEN CARBONATE [Concomitant]
     Dosage: UNK
     Dates: start: 20100916
  16. ALLOPURINOL [Concomitant]
     Dosage: UNK
     Dates: start: 20100916
  17. LEVOFLOXACIN [Concomitant]
     Dosage: UNK
     Dates: start: 20110323

REACTIONS (3)
  - PARTIAL SEIZURES [None]
  - PYREXIA [None]
  - INFECTION [None]
